FAERS Safety Report 8461470-5 (Version None)
Quarter: 2012Q2

REPORT INFORMATION
  Report Type: 
  Country: None (occurrence: None)
  Receive Date: 20120625
  Receipt Date: 20120615
  Transmission Date: 20120825
  Serious: Yes (Other)
  Sender: FDA-Public Use
  Company Number: US-US-EMD SERONO, INC.-7141280

PATIENT
  Sex: Female

DRUGS (4)
  1. HYDROCHLOROTHIAZIDE [Concomitant]
     Indication: HYPERTENSION
  2. SEIZURE MEDICATION [Concomitant]
     Indication: MYOCLONUS
  3. BACLOFEN [Concomitant]
     Indication: MUSCLE SPASTICITY
  4. REBIF [Suspect]
     Indication: PRODUCT USED FOR UNKNOWN INDICATION
     Route: 058
     Dates: start: 20101208

REACTIONS (1)
  - SEIZURE LIKE PHENOMENA [None]
